FAERS Safety Report 7597934-6 (Version None)
Quarter: 2011Q3

REPORT INFORMATION
  Report Type: 
  Country: None (occurrence: None)
  Receive Date: 20110708
  Receipt Date: 20100730
  Transmission Date: 20111222
  Serious: Yes (Other)
  Sender: FDA-Public Use
  Company Number: JP-PFIZER INC-2011147740

PATIENT
  Age: 69 Year
  Sex: Male

DRUGS (8)
  1. ASPIRIN [Suspect]
     Indication: ANGINA PECTORIS
     Dosage: 100 MG, UNK
     Route: 048
     Dates: start: 20090810, end: 20090812
  2. PRASUGREL [Suspect]
     Dosage: 3.75 MG, UNK
     Route: 048
     Dates: end: 20090812
  3. LOCHOLEST [Suspect]
     Indication: DYSLIPIDAEMIA
     Dosage: 30 MG, UNK
     Route: 048
     Dates: start: 20090713
  4. PRASUGREL [Suspect]
     Indication: CORONARY ARTERY DISEASE
     Dosage: 20 MG, UNK
     Route: 048
     Dates: start: 20090811
  5. OLMESARTAN MEDOXOMIL [Suspect]
     Indication: HYPERTENSION
     Dosage: 20 MG, UNK
     Route: 048
     Dates: start: 20090526
  6. ALLOPURINOL [Concomitant]
     Indication: HYPERURICAEMIA
     Dosage: 100 MG, UNK
     Route: 048
     Dates: start: 20090807
  7. NORVASC [Suspect]
     Indication: HYPERTENSION
     Dosage: 10 MG, UNK
     Route: 048
     Dates: start: 20090710
  8. FAMOGAST [Concomitant]
     Indication: GASTRITIS PROPHYLAXIS
     Dosage: 10 MG, UNK
     Route: 048
     Dates: start: 20090702, end: 20090815

REACTIONS (1)
  - DUODENAL ULCER HAEMORRHAGE [None]
